FAERS Safety Report 4590202-6 (Version None)
Quarter: 2005Q1

REPORT INFORMATION
  Report Type: 
  Country: None (occurrence: None)
  Receive Date: 20050224
  Receipt Date: 20040823
  Transmission Date: 20050727
  Serious: Yes (Hospitalization, Other)
  Sender: FDA-Public Use
  Company Number: ES-BRISTOL-MYERS SQUIBB COMPANY-12679502

PATIENT
  Age: 43 Year
  Sex: Male
  Weight: 78 kg

DRUGS (6)
  1. ATAZANAVIR [Suspect]
     Indication: HIV INFECTION
     Dates: start: 20040611
  2. ZERIT [Concomitant]
     Indication: HIV INFECTION
     Dates: start: 20030613
  3. RITONAVIR [Concomitant]
     Indication: HIV INFECTION
     Dates: start: 20040611
  4. EPIVIR [Concomitant]
     Indication: HIV INFECTION
     Dates: start: 20030613
  5. METHADONE [Concomitant]
     Dates: start: 19960715
  6. ALPRAZOLAM [Concomitant]
     Dates: start: 20031008

REACTIONS (1)
  - OEDEMA PERIPHERAL [None]
